FAERS Safety Report 6815671-X (Version None)
Quarter: 2010Q3

REPORT INFORMATION
  Report Type: 
  Country: None (occurrence: None)
  Receive Date: 20100702
  Receipt Date: 20100625
  Transmission Date: 20110219
  Serious: Yes (Other)
  Sender: FDA-Public Use
  Company Number: US-ABBOTT-10P-163-0653641-00

PATIENT
  Sex: Female
  Weight: 72.64 kg

DRUGS (2)
  1. LUPRON DEPOT [Suspect]
     Indication: UTERINE LEIOMYOMA
     Route: 050
     Dates: start: 20100129, end: 20100129
  2. NAPROSYN [Suspect]
     Indication: PROCEDURAL PAIN
     Dates: start: 20100401, end: 20100501

REACTIONS (7)
  - ABDOMINAL PAIN [None]
  - ARTHRALGIA [None]
  - GAIT DISTURBANCE [None]
  - HOT FLUSH [None]
  - INCISION SITE PAIN [None]
  - PRURITUS [None]
  - SENSORY DISTURBANCE [None]
